FAERS Safety Report 7324136-0 (Version None)
Quarter: 2011Q1

REPORT INFORMATION
  Report Type: 
  Country: None (occurrence: None)
  Receive Date: 20110301
  Receipt Date: 20110223
  Transmission Date: 20110831
  Serious: Yes (Hospitalization)
  Sender: FDA-Public Use
  Company Number: US-MERCK-1102USA03207

PATIENT
  Age: 79 Year
  Sex: Female

DRUGS (1)
  1. FOSAMAX [Suspect]
     Route: 048

REACTIONS (5)
  - DYSPHAGIA [None]
  - WEIGHT DECREASED [None]
  - PHARYNGOESOPHAGEAL DIVERTICULUM [None]
  - DEHYDRATION [None]
  - ODYNOPHAGIA [None]
